FAERS Safety Report 8800166 (Version 1)
Quarter: 2012Q4

REPORT INFORMATION
  Report Type: 
  Country: AR (occurrence: AR)
  Receive Date: 20120921
  Receipt Date: 20120921
  Transmission Date: 20130627
  Serious: Yes (Death, Other)
  Sender: FDA-Public Use
  Company Number: PHHY2012AR081929

PATIENT
  Sex: Male

DRUGS (1)
  1. EXELON PATCH [Suspect]
     Indication: DEMENTIA ALZHEIMER^S TYPE
     Dosage: (4.6 mg/24 h), 5 cms daily
     Route: 062

REACTIONS (3)
  - Acquired immunodeficiency syndrome [Fatal]
  - Rib fracture [Unknown]
  - Fall [Unknown]
